FAERS Safety Report 10245011 (Version 1)
Quarter: 2014Q2

REPORT INFORMATION
  Report Type: Spontaneous
  Country: US (occurrence: US)
  Receive Date: 20140618
  Receipt Date: 20140618
  Transmission Date: 20141212
  Serious: No
  Sender: FDA-Public Use
  Company Number: US-GALDERMA-US14001049

PATIENT
  Sex: Female

DRUGS (7)
  1. MIRVASO (BRIMONIDINE) TOPICAL GEL, 0.33% [Suspect]
     Indication: ROSACEA
     Dosage: 0.33%
     Route: 061
     Dates: start: 20140124, end: 201402
  2. OLAY PROX FOAM WASH [Concomitant]
     Indication: THERAPEUTIC SKIN CARE TOPICAL
     Route: 061
  3. NO7 SERUM MOISTURIZER WITH SUNSCREEN [Concomitant]
     Indication: DRY SKIN PROPHYLAXIS
  4. NO7 SERUM MOISTURIZER WITH SUNSCREEN [Concomitant]
     Indication: PROPHYLAXIS AGAINST SOLAR RADIATION
  5. RENOVA [Concomitant]
     Route: 061
  6. VITMAIN C CREAM WITH SUNSCREEN [Concomitant]
     Route: 061
  7. BIAFINE [Concomitant]

REACTIONS (6)
  - Rebound effect [Recovered/Resolved]
  - Feeling hot [Recovered/Resolved]
  - Flushing [Recovered/Resolved]
  - Erythema [Recovered/Resolved]
  - Inappropriate schedule of drug administration [Recovered/Resolved]
  - Drug effect decreased [Not Recovered/Not Resolved]
